FAERS Safety Report 6571500-3 (Version None)
Quarter: 2010Q1

REPORT INFORMATION
  Report Type: 
  Country: None (occurrence: None)
  Receive Date: 20100205
  Receipt Date: 20100127
  Transmission Date: 20100710
  Serious: Yes (Other)
  Sender: FDA-Public Use
  Company Number: US-JNJFOC-20100201101

PATIENT
  Sex: Female
  Weight: 50.8 kg

DRUGS (4)
  1. EXTRA STRENGTH TYLENOL [Suspect]
     Route: 048
  2. EXTRA STRENGTH TYLENOL [Suspect]
     Indication: FIBROMYALGIA
     Route: 048
  3. PHENOBARB [Concomitant]
     Indication: CONVULSION PROPHYLAXIS
  4. DIAZEPAM [Concomitant]
     Indication: CONVULSION PROPHYLAXIS

REACTIONS (4)
  - ABDOMINAL PAIN UPPER [None]
  - DIARRHOEA HAEMORRHAGIC [None]
  - NAUSEA [None]
  - PRODUCT ODOUR ABNORMAL [None]
